FAERS Safety Report 5599877-6 (Version None)
Quarter: 2008Q1

REPORT INFORMATION
  Report Type: 
  Country: None (occurrence: None)
  Receive Date: 20080117
  Receipt Date: 20080108
  Transmission Date: 20080703
  Serious: Yes (Other)
  Sender: FDA-Public Use
  Company Number: 18170

PATIENT
  Age: 66 Year
  Sex: Male

DRUGS (10)
  1. LEUCOVORIN CALCIUM [Suspect]
     Indication: COLON CANCER METASTATIC
  2. LEUCOVORIN CALCIUM [Suspect]
     Indication: METASTASES TO LIVER
  3. LEUCOVORIN CALCIUM [Suspect]
     Indication: METASTASES TO LUNG
  4. FLUOROURACIL [Suspect]
     Indication: COLON CANCER METASTATIC
  5. FLUOROURACIL [Suspect]
     Indication: METASTASES TO LIVER
  6. FLUOROURACIL [Suspect]
     Indication: METASTASES TO LUNG
  7. OXALIPLATIN [Suspect]
     Indication: COLON CANCER METASTATIC
  8. OXALIPLATIN [Suspect]
     Indication: METASTASES TO LIVER
  9. OXALIPLATIN [Suspect]
     Indication: METASTASES TO LUNG
  10. HYPOGLYCEMIC DRUGS [Concomitant]

REACTIONS (3)
  - LYMPHOID TISSUE HYPERPLASIA [None]
  - PSEUDOLYMPHOMA [None]
  - RASH [None]
